FAERS Safety Report 24570337 (Version 1)
Quarter: 2024Q4

REPORT INFORMATION
  Report Type: Report from Study
  Country: CO (occurrence: CO)
  Receive Date: 20241031
  Receipt Date: 20241031
  Transmission Date: 20250115
  Serious: Yes (Other)
  Sender: KYOWA
  Company Number: CO-KYOWAKIRIN-2024KK024700

PATIENT

DRUGS (10)
  1. CRYSVITA [Suspect]
     Active Substance: BUROSUMAB-TWZA
     Indication: Hereditary hypophosphataemic rickets
     Dosage: 60 MG, 1X/MONTH
     Route: 058
     Dates: start: 20240910
  2. CRYSVITA [Suspect]
     Active Substance: BUROSUMAB-TWZA
     Dosage: 60 MG, 1X/MONTH
     Route: 058
     Dates: start: 20211211, end: 20220511
  3. CRYSVITA [Suspect]
     Active Substance: BUROSUMAB-TWZA
     Dosage: 60 MG, 1X/MONTH
     Route: 058
     Dates: start: 20220716, end: 20220813
  4. CRYSVITA [Suspect]
     Active Substance: BUROSUMAB-TWZA
     Dosage: 60 MG, 1X/MONTH
     Route: 058
     Dates: start: 20220924, end: 20220924
  5. CRYSVITA [Suspect]
     Active Substance: BUROSUMAB-TWZA
     Dosage: 60 MG, 1X/MONTH
     Route: 058
     Dates: start: 20221129, end: 20230128
  6. CRYSVITA [Suspect]
     Active Substance: BUROSUMAB-TWZA
     Dosage: 60 MG, 1X/MONTH
     Route: 058
     Dates: start: 20230321, end: 20230516
  7. CRYSVITA [Suspect]
     Active Substance: BUROSUMAB-TWZA
     Dosage: 60 MG, 1X/MONTH
     Route: 058
     Dates: start: 20230711, end: 20231011
  8. CRYSVITA [Suspect]
     Active Substance: BUROSUMAB-TWZA
     Dosage: 60 MG, 1X/MONTH
     Route: 058
     Dates: start: 20231116, end: 20240111
  9. CRYSVITA [Suspect]
     Active Substance: BUROSUMAB-TWZA
     Dosage: 60 MG, 1X/MONTH
     Route: 058
     Dates: start: 20240311, end: 20240409
  10. CRYSVITA [Suspect]
     Active Substance: BUROSUMAB-TWZA
     Dosage: 60 MG, 1X/MONTH
     Route: 058
     Dates: start: 20240528, end: 20240730

REACTIONS (1)
  - Nephrolithiasis [Recovering/Resolving]

NARRATIVE: CASE EVENT DATE: 20241018
